FAERS Safety Report 7602315-2 (Version None)
Quarter: 2011Q3

REPORT INFORMATION
  Report Type: 
  Country: None (occurrence: None)
  Receive Date: 20110712
  Receipt Date: 20110705
  Transmission Date: 20111222
  Serious: Yes (Other)
  Sender: FDA-Public Use
  Company Number: US-BIOGENIDEC-2010BI036712

PATIENT
  Age: 27 Year
  Sex: Female
  Weight: 97 kg

DRUGS (2)
  1. NORVASC [Concomitant]
     Indication: ESSENTIAL HYPERTENSION
  2. AVONEX [Suspect]
     Indication: MULTIPLE SCLEROSIS
     Route: 030
     Dates: start: 20061227, end: 20101001

REACTIONS (4)
  - BACK PAIN [None]
  - URINARY TRACT INFECTION [None]
  - PLACENTAL DISORDER [None]
  - HYPERTENSION [None]
